FAERS Safety Report 9579911 (Version 1)
Quarter: 2013Q4

REPORT INFORMATION
  Report Type: Spontaneous
  Country: FR (occurrence: FR)
  Receive Date: 20131002
  Receipt Date: 20131002
  Transmission Date: 20140711
  Serious: Yes (Other)
  Sender: FDA-Public Use
  Company Number: FR-009507513-1309FRA011712

PATIENT
  Sex: Male

DRUGS (6)
  1. TRUSOPT 20MG/ML, COLLYRE EN SOLUTION [Suspect]
     Indication: GLAUCOMA
     Dosage: UNK GTT, UNK
     Route: 047
     Dates: start: 20091201, end: 20100621
  2. TRUSOPT 20MG/ML, COLLYRE EN SOLUTION [Suspect]
     Dosage: 2 GTT, QD
     Route: 047
     Dates: start: 20130625
  3. CARTEOL [Suspect]
     Indication: GLAUCOMA
     Dosage: 1 GTT, QD
     Dates: start: 20050307, end: 20081117
  4. CARTEOL [Suspect]
     Dosage: UNK
     Route: 047
     Dates: start: 20100622, end: 20120319
  5. XALACOM [Suspect]
     Indication: GLAUCOMA
     Dosage: 1 GTT, QD
     Route: 047
     Dates: start: 20081118, end: 20091130
  6. XALATAN [Suspect]
     Indication: GLAUCOMA
     Dosage: UNK
     Route: 047
     Dates: start: 20091201

REACTIONS (1)
  - Raynaud^s phenomenon [Not Recovered/Not Resolved]
